FAERS Safety Report 25724777 (Version 2)
Quarter: 2025Q4

REPORT INFORMATION
  Report Type: Spontaneous
  Country: US (occurrence: US)
  Receive Date: 20250826
  Receipt Date: 20251007
  Transmission Date: 20260118
  Serious: No
  Sender: AVADEL CNS PHARMACEUTICALS, LLC
  Company Number: US-AVADEL CNS PHARMACEUTICALS, LLC-2025AVA02068

PATIENT
  Sex: Female
  Weight: 80.726 kg

DRUGS (1)
  1. LUMRYZ [Suspect]
     Active Substance: SODIUM OXYBATE
     Indication: Narcolepsy
     Dosage: UNK
     Dates: start: 2025, end: 2025

REACTIONS (1)
  - Dissociative identity disorder [Recovered/Resolved]

NARRATIVE: CASE EVENT DATE: 20250101
